FAERS Safety Report 10484880 (Version 5)
Quarter: 2014Q4

REPORT INFORMATION
  Report Type: Spontaneous
  Country: US (occurrence: US)
  Receive Date: 20140930
  Receipt Date: 20141103
  Transmission Date: 20150528
  Serious: Yes (Other)
  Sender: FDA-Public Use
  Company Number: US-PFIZER INC-2014266201

PATIENT
  Age: 71 Year
  Sex: Female
  Weight: 83 kg

DRUGS (17)
  1. HYDROCHLOROTHIAZIDE. [Concomitant]
     Active Substance: HYDROCHLOROTHIAZIDE
     Dosage: 25 MG, 1X/DAY
     Route: 048
  2. ISOSORBIDE MONONITRATE. [Concomitant]
     Active Substance: ISOSORBIDE MONONITRATE
     Dosage: 30 MG, 1X/DAY (AT BED TIME)
  3. BACLOFEN. [Concomitant]
     Active Substance: BACLOFEN
     Indication: SOMNOLENCE
  4. BACLOFEN. [Concomitant]
     Active Substance: BACLOFEN
     Indication: MUSCLE SPASMS
     Dosage: 10 MG (HALF TO ONE TABLET EVERY 8 HOURS), AS NEEDED
  5. ASPIRIN. [Concomitant]
     Active Substance: ASPIRIN
     Dosage: 325 MG, UNK
  6. ZOFRAN [Concomitant]
     Active Substance: ONDANSETRON HYDROCHLORIDE
     Indication: VOMITING
  7. TRIAZOLAM. [Concomitant]
     Active Substance: TRIAZOLAM
     Dosage: 0.26 MG, 1X/DAY (AT BED TIME)
     Route: 048
  8. ALBUTEROL. [Concomitant]
     Active Substance: ALBUTEROL
     Dosage: UNK
  9. LISINOPRIL / HYDROCHLOROTHIAZIDE [Concomitant]
     Dosage: [LINSINOPRIL 20 MG]/[HYDROCHLORTHIAZIDE 12 .5 MG] 1 DF, 2X/DAY
     Route: 048
  10. ZOFRAN [Concomitant]
     Active Substance: ONDANSETRON HYDROCHLORIDE
     Indication: NAUSEA
     Dosage: 4 MG, AS NEEDED (ONE EVERY 4 HOURS)
     Route: 048
  11. OMEPRAZOLE. [Concomitant]
     Active Substance: OMEPRAZOLE
     Dosage: 20 MG, 2X/DAY
     Route: 048
  12. ATIVAN [Concomitant]
     Active Substance: LORAZEPAM
     Indication: ANXIETY
     Dosage: 0.5 MG (HALF TO ONE PILL EVERY 6 HOURS), AS NEEDED
  13. SODIUM CHLORIDE. [Concomitant]
     Active Substance: SODIUM CHLORIDE
     Dosage: 1 G, 3X/DAY
     Route: 048
  14. OXYGEN. [Concomitant]
     Active Substance: OXYGEN
     Dosage: UNK
  15. LYRICA [Suspect]
     Active Substance: PREGABALIN
     Indication: NEURALGIA
     Dosage: 200 MG, 3X/DAY
     Route: 048
     Dates: start: 2012
  16. NITROGLYCERIN. [Concomitant]
     Active Substance: NITROGLYCERIN
     Dosage: 0.4MG/TABLET UNDER TONGUE MAY REPEAT EVERY 5 MIN, MAX 3 DOSES IN 15 MIN
     Route: 060
  17. PROMETHAZINE HYDROCHLORIDE. [Concomitant]
     Active Substance: PROMETHAZINE HYDROCHLORIDE
     Indication: NAUSEA
     Dosage: 25 MG, AS NEEDED (1 TABLET PER 4-6 HOURS AS NEEDED)

REACTIONS (32)
  - Coronary artery disease [Unknown]
  - Disease progression [Unknown]
  - Peripheral coldness [Unknown]
  - Panic attack [Unknown]
  - Coronary artery disease [Unknown]
  - Anxiety [Unknown]
  - Fear [Unknown]
  - Mental impairment [Unknown]
  - Malaise [Unknown]
  - Decreased appetite [Unknown]
  - Depression [Unknown]
  - Dyspnoea [Unknown]
  - Fatigue [Unknown]
  - Back pain [Unknown]
  - Tearfulness [Unknown]
  - Memory impairment [Unknown]
  - Blood sodium decreased [Unknown]
  - Drug withdrawal syndrome [Unknown]
  - Abdominal pain [Unknown]
  - Psychomotor retardation [Unknown]
  - Agitation [Unknown]
  - Muscle spasms [Unknown]
  - Nausea [Unknown]
  - Flat affect [Unknown]
  - Diarrhoea [Unknown]
  - Vomiting [Unknown]
  - Blood osmolarity decreased [Unknown]
  - Feeling of body temperature change [Unknown]
  - Tremor [Unknown]
  - Affect lability [Unknown]
  - Psychomotor hyperactivity [Unknown]
  - Somnolence [Unknown]

NARRATIVE: CASE EVENT DATE: 20130214
